FAERS Safety Report 6977533-7 (Version None)
Quarter: 2010Q3

REPORT INFORMATION
  Report Type: 
  Country: None (occurrence: None)
  Receive Date: 20100910
  Receipt Date: 20100901
  Transmission Date: 20110219
  Serious: Yes (Death, Other)
  Sender: FDA-Public Use
  Company Number: US-AMGEN-QUU430137

PATIENT
  Sex: Male

DRUGS (10)
  1. NPLATE [Suspect]
     Indication: IDIOPATHIC THROMBOCYTOPENIC PURPURA
     Dates: start: 20081016, end: 20090127
  2. PANTOPRAZOLE [Concomitant]
     Route: 048
  3. DIGOXIN [Concomitant]
     Route: 048
  4. MAGNESIUM OXIDE [Concomitant]
     Route: 048
  5. PREDNISONE [Concomitant]
     Route: 048
  6. CARAFATE [Concomitant]
  7. EMEND [Concomitant]
     Route: 048
  8. NEXIUM [Concomitant]
     Route: 048
  9. COMPAZINE [Concomitant]
  10. CENTRUM SILVER [Concomitant]

REACTIONS (10)
  - ANAEMIA [None]
  - ATRIAL FIBRILLATION [None]
  - BONE MARROW DISORDER [None]
  - ELECTROCARDIOGRAM ABNORMAL [None]
  - GASTROINTESTINAL HAEMORRHAGE [None]
  - HAEMATOLOGICAL MALIGNANCY [None]
  - HYPERTENSION [None]
  - LYMPHOMA [None]
  - PANCYTOPENIA [None]
  - THROMBOCYTOPENIA [None]
